FAERS Safety Report 20058438 (Version 1)
Quarter: 2021Q4

REPORT INFORMATION
  Report Type: Spontaneous
  Country: CN (occurrence: CN)
  Receive Date: 20211111
  Receipt Date: 20211111
  Transmission Date: 20220304
  Serious: Yes (Other)
  Sender: FDA-Public Use
  Company Number: CN-PFIZER INC-202101484146

PATIENT
  Age: 6 Year
  Sex: Female
  Weight: 35 kg

DRUGS (2)
  1. VORICONAZOLE [Suspect]
     Active Substance: VORICONAZOLE
     Indication: Anti-infective therapy
     Dosage: 200 MG, 2X/DAY
     Route: 041
     Dates: start: 20211008, end: 20211013
  2. COMPOUND PARACETAMOL AND CHLORPHENAMINE MALEATE [Concomitant]
     Indication: Infection
     Dosage: 1.5 DF, 4X/DAY
     Route: 048
     Dates: start: 20211008, end: 20211011

REACTIONS (2)
  - Transaminases increased [Recovering/Resolving]
  - Hepatic function abnormal [Recovering/Resolving]

NARRATIVE: CASE EVENT DATE: 20211013
